FAERS Safety Report 5491943-9 (Version None)
Quarter: 2007Q4

REPORT INFORMATION
  Report Type: 
  Country: None (occurrence: None)
  Receive Date: 20071017
  Receipt Date: 20071017
  Transmission Date: 20080405
  Serious: Yes (Life-Threatening, Other)
  Sender: FDA-Public Use
  Company Number: None

PATIENT
  Age: 6 Year
  Sex: Female
  Weight: 22.2263 kg

DRUGS (1)
  1. SINGULAIR [Suspect]
     Indication: HYPERSENSITIVITY
     Dosage: 5 MG PER DAY- 1 IN AM  1 PER DAY  PO
     Route: 048
     Dates: start: 20070928, end: 20071014

REACTIONS (6)
  - ERYTHEMA [None]
  - FEELING ABNORMAL [None]
  - HEART RATE INCREASED [None]
  - NAUSEA [None]
  - PALLOR [None]
  - TREMOR [None]
